FAERS Safety Report 11418553 (Version 1)
Quarter: 2015Q3

REPORT INFORMATION
  Report Type: Spontaneous
  Country: MX (occurrence: MX)
  Receive Date: 20150826
  Receipt Date: 20150826
  Transmission Date: 20151125
  Serious: Yes (Other)
  Sender: FDA-Public Use
  Company Number: MX-AMGEN-MEXSP2015073883

PATIENT

DRUGS (1)
  1. NPLATE [Suspect]
     Active Substance: ROMIPLOSTIM
     Indication: MYELODYSPLASTIC SYNDROME
     Route: 065

REACTIONS (3)
  - Thrombocytopenia [Unknown]
  - Cholecystectomy [Unknown]
  - Off label use [Unknown]
